FAERS Safety Report 10174141 (Version 1)
Quarter: 2014Q2

REPORT INFORMATION
  Report Type: Spontaneous
  Country: US (occurrence: None)
  Receive Date: 20140514
  Receipt Date: 20140514
  Transmission Date: 20141212
  Serious: Yes (Other)
  Sender: FDA-Public Use
  Company Number: None

PATIENT
  Age: 50 Year
  Sex: Female
  Weight: 78.6 kg

DRUGS (2)
  1. SOVALDI [Suspect]
     Indication: HEPATITIS C
     Route: 048
     Dates: start: 20140322
  2. RIBASPHERE [Suspect]
     Dosage: 600 MG Q AM AND Q PM PO?
     Route: 048

REACTIONS (3)
  - Chills [None]
  - Psychogenic seizure [None]
  - Refusal of treatment by patient [None]
